FAERS Safety Report 6974417-5 (Version None)
Quarter: 2010Q3

REPORT INFORMATION
  Report Type: 
  Country: None (occurrence: None)
  Receive Date: 20100909
  Receipt Date: 20080529
  Transmission Date: 20110219
  Serious: No
  Sender: FDA-Public Use
  Company Number: US-WYE-H04338808

PATIENT
  Age: 80 Year
  Weight: 49.03 kg

DRUGS (7)
  1. PROTONIX [Suspect]
     Dosage: 40
  2. CENTRUM SILVER [Suspect]
     Dosage: 1 TABLET SPORADICALLY
  3. PRAVASTATIN [Concomitant]
  4. ATENOLOL [Concomitant]
  5. PLENDIL [Concomitant]
  6. CALCIUM CARBONATE [Suspect]
     Dosage: 1 TABLET SPORADICALLY
  7. ACTONEL [Concomitant]

REACTIONS (1)
  - VITAMIN D DEFICIENCY [None]
